FAERS Safety Report 18697362 (Version 1)
Quarter: 2021Q1

REPORT INFORMATION
  Report Type: Spontaneous
  Country: RU (occurrence: RU)
  Receive Date: 20210104
  Receipt Date: 20210104
  Transmission Date: 20210419
  Serious: Yes (Other)
  Sender: FDA-Public Use
  Company Number: RU-NOVOPROD-777960

PATIENT
  Age: 39 Year
  Sex: Female
  Weight: 68 kg

DRUGS (6)
  1. NIMESULID [Concomitant]
     Active Substance: NIMESULIDE
     Indication: EAR PAIN
     Dosage: 1 TIME PER DAY (AT NIGHT) DURING 3 DAYS
     Route: 048
  2. NOVORAPID [Suspect]
     Active Substance: INSULIN ASPART
     Indication: TYPE 1 DIABETES MELLITUS
     Dosage: 30 IU, QD
     Route: 058
     Dates: start: 20200916, end: 20200930
  3. KETOROLAC [Concomitant]
     Active Substance: KETOROLAC TROMETHAMINE
     Indication: HEADACHE
     Dosage: 10 MG
     Route: 048
     Dates: start: 20200811, end: 20200816
  4. THYROZOL [Concomitant]
     Active Substance: METHIMAZOLE
     Indication: TOXIC GOITRE
     Dosage: 30 MG, QD
     Route: 048
     Dates: start: 201703
  5. TOUJEO [Concomitant]
     Active Substance: INSULIN GLARGINE
     Indication: TYPE 1 DIABETES MELLITUS
     Dosage: 36 IU, QD
     Route: 058
     Dates: start: 199703
  6. OMEPRAZOLE. [Concomitant]
     Active Substance: OMEPRAZOLE
     Indication: GASTRIC DISORDER
     Dosage: 20 MG
     Route: 048
     Dates: start: 20201023

REACTIONS (6)
  - Diabetic retinopathy [Unknown]
  - Eye haemorrhage [Unknown]
  - Myopia [Unknown]
  - Vitrectomy [Unknown]
  - Blood glucose fluctuation [Recovering/Resolving]
  - Drug ineffective [Unknown]

NARRATIVE: CASE EVENT DATE: 20200930
